FAERS Safety Report 24298909 (Version 1)
Quarter: 2024Q3

REPORT INFORMATION
  Report Type: Spontaneous
  Country: US (occurrence: US)
  Receive Date: 20240909
  Receipt Date: 20240909
  Transmission Date: 20241016
  Serious: No
  Sender: BRISTOL MYERS SQUIBB
  Company Number: US-BRISTOL-MYERS SQUIBB COMPANY-2024-140346

PATIENT
  Age: 26 Year
  Sex: Female
  Weight: 54.9 kg

DRUGS (15)
  1. ELIQUIS [Suspect]
     Active Substance: APIXABAN
     Indication: Product used for unknown indication
     Dates: end: 2024
  2. REMODULIN [Suspect]
     Active Substance: TREPROSTINIL
     Indication: Pulmonary arterial hypertension
     Route: 041
     Dates: start: 20240627
  3. REMODULIN [Suspect]
     Active Substance: TREPROSTINIL
     Route: 041
     Dates: start: 20240716
  4. REMODULIN [Suspect]
     Active Substance: TREPROSTINIL
     Route: 041
     Dates: start: 2024
  5. REMODULIN [Suspect]
     Active Substance: TREPROSTINIL
     Route: 041
     Dates: start: 20240805, end: 20240807
  6. REMODULIN [Suspect]
     Active Substance: TREPROSTINIL
     Route: 041
     Dates: start: 202408
  7. SODIUM CHLORIDE [Concomitant]
     Active Substance: SODIUM CHLORIDE
  8. OPSUMIT [Concomitant]
     Active Substance: MACITENTAN
  9. POTASSIUM CHLORIDE [Concomitant]
     Active Substance: POTASSIUM CHLORIDE
  10. BUMETANIDE [Concomitant]
     Active Substance: BUMETANIDE
  11. OXYGEN [Concomitant]
     Active Substance: OXYGEN
  12. MIDODRINE HYDROCHLORIDE [Concomitant]
     Active Substance: MIDODRINE HYDROCHLORIDE
  13. DIGOXIN [Concomitant]
     Active Substance: DIGOXIN
  14. XARELTO [Concomitant]
     Active Substance: RIVAROXABAN
  15. SAVAYSA [Concomitant]
     Active Substance: EDOXABAN TOSYLATE

REACTIONS (9)
  - Dermatitis allergic [Recovering/Resolving]
  - Palpitations [Recovered/Resolved]
  - Headache [Unknown]
  - Pain in jaw [Unknown]
  - Epistaxis [Recovered/Resolved]
  - Dizziness [Unknown]
  - Nausea [Unknown]
  - Fatigue [Unknown]
  - Pain [Unknown]

NARRATIVE: CASE EVENT DATE: 20240101
